FAERS Safety Report 8005931-1 (Version None)
Quarter: 2011Q4

REPORT INFORMATION
  Report Type: 
  Country: None (occurrence: None)
  Receive Date: 20111223
  Receipt Date: 20111212
  Transmission Date: 20120403
  Serious: Yes (Other)
  Sender: FDA-Public Use
  Company Number: JP-ROCHE-1021005

PATIENT

DRUGS (2)
  1. PEGINTERFERON ALFA-2B [Suspect]
     Indication: HEPATITIS C
     Dosage: 0.75 UG/KG
     Route: 058
  2. COPEGUS [Suspect]
     Indication: HEPATITIS C
     Dosage: 600-800 MG/DAY

REACTIONS (9)
  - THROMBOCYTOPENIA [None]
  - DEPRESSION [None]
  - HEPATIC NEOPLASM MALIGNANT [None]
  - POLYMYOSITIS [None]
  - SPINAL COMPRESSION FRACTURE [None]
  - STEVENS-JOHNSON SYNDROME [None]
  - ANAEMIA [None]
  - FATIGUE [None]
  - NEPHROTIC SYNDROME [None]
